FAERS Safety Report 5358694-2 (Version None)
Quarter: 2007Q2

REPORT INFORMATION
  Report Type: 
  Country: None (occurrence: None)
  Receive Date: 20070614
  Receipt Date: 20070614
  Transmission Date: 20071010
  Serious: Yes (Hospitalization)
  Sender: FDA-Public Use
  Company Number: None

PATIENT
  Age: 82 Year
  Sex: Female

DRUGS (1)
  1. LEVAQUIN [Suspect]
     Indication: INFECTION
     Dosage: 500 DAILY IV DRIP

REACTIONS (4)
  - ADVERSE DRUG REACTION [None]
  - DISCOMFORT [None]
  - INFUSION SITE ERYTHEMA [None]
  - INFUSION SITE REACTION [None]
